FAERS Safety Report 13130651 (Version 2)
Quarter: 2017Q1

REPORT INFORMATION
  Report Type: Report from Study
  Country: US (occurrence: US)
  Receive Date: 20170119
  Receipt Date: 20170220
  Transmission Date: 20170428
  Serious: Yes (Hospitalization)
  Sender: FDA-Public Use
  Company Number: US-ASTELLAS-2017US000580

PATIENT
  Age: 68 Year
  Sex: Female
  Weight: 46 kg

DRUGS (4)
  1. ASP8273 [Suspect]
     Active Substance: INVESTIGATIONAL PRODUCT
     Indication: NON-SMALL CELL LUNG CANCER
     Route: 048
     Dates: start: 20161101, end: 20161128
  2. ASPIRIN. [Suspect]
     Active Substance: ASPIRIN
     Indication: ARTHRALGIA
     Route: 048
     Dates: start: 20140602, end: 20161215
  3. ERLOTINIB [Concomitant]
     Active Substance: ERLOTINIB
     Indication: PRODUCT USED FOR UNKNOWN INDICATION
     Dosage: UNK UNK, UNKNOWN FREQ.
     Route: 065
     Dates: start: 20161206
  4. ASPIRIN. [Suspect]
     Active Substance: ASPIRIN
     Indication: ARTHRALGIA
     Route: 048
     Dates: start: 20161216, end: 20161223

REACTIONS (3)
  - Anaemia [Recovered/Resolved]
  - Gastritis [Recovered/Resolved]
  - Upper gastrointestinal haemorrhage [Recovered/Resolved]

NARRATIVE: CASE EVENT DATE: 20161223
